FAERS Safety Report 19935604 (Version 2)
Quarter: 2021Q4

REPORT INFORMATION
  Report Type: Spontaneous
  Country: US (occurrence: US)
  Receive Date: 20211008
  Receipt Date: 20211013
  Transmission Date: 20220304
  Serious: Yes (Other)
  Sender: FDA-Public Use
  Company Number: US-SA-SAC20211005001659

PATIENT
  Age: 59 Year
  Sex: Male

DRUGS (1)
  1. AUBAGIO [Suspect]
     Active Substance: TERIFLUNOMIDE
     Indication: Multiple sclerosis
     Dosage: 14 MG, QD
     Route: 048
     Dates: start: 201912

REACTIONS (5)
  - Multiple sclerosis relapse [Unknown]
  - Fatigue [Unknown]
  - Balance disorder [Unknown]
  - Condition aggravated [Unknown]
  - Therapeutic product effect decreased [Unknown]
